FAERS Safety Report 7092345-4 (Version None)
Quarter: 2010Q4

REPORT INFORMATION
  Report Type: 
  Country: None (occurrence: None)
  Receive Date: 20101110
  Receipt Date: 20101027
  Transmission Date: 20110411
  Serious: Yes (Hospitalization, Other)
  Sender: FDA-Public Use
  Company Number: US-AMGEN-USASP2010000453

PATIENT

DRUGS (2)
  1. EPOGEN [Suspect]
     Indication: ANAEMIA
     Dosage: UNK
     Dates: start: 20080501, end: 20100101
  2. EPOGEN [Suspect]
     Dosage: UNK
     Dates: start: 20100401

REACTIONS (6)
  - ADVERSE REACTION [None]
  - BLEEDING PERIPARTUM [None]
  - CAESAREAN SECTION [None]
  - HYSTERECTOMY [None]
  - MUSCULOSKELETAL PAIN [None]
  - SUPPRESSED LACTATION [None]
